FAERS Safety Report 8192066-0 (Version None)
Quarter: 2012Q1

REPORT INFORMATION
  Report Type: 
  Country: None (occurrence: None)
  Receive Date: 20120307
  Receipt Date: 20120302
  Transmission Date: 20120608
  Serious: Yes (Death, Other)
  Sender: FDA-Public Use
  Company Number: US-BAYER-200940148NA

PATIENT
  Age: 73 Year
  Sex: Female
  Weight: 81 kg

DRUGS (20)
  1. LASIX [Concomitant]
     Dosage: 40 MG, QD
     Route: 048
     Dates: start: 20050520
  2. PLAVIX [Concomitant]
     Dosage: 75 MG, UNK
     Route: 048
     Dates: start: 20050520
  3. VERSED [Concomitant]
     Dosage: 10 MG, UNK
     Route: 042
     Dates: start: 20050525
  4. HUMULIN 70/30 [Concomitant]
     Indication: DIABETES MELLITUS
     Dosage: 50 UNITS / EVERY MORNING, 25 UNITS / EVERY EVENING
     Route: 058
  5. ALDACTONE [Concomitant]
     Dosage: 5 MG, QD
     Route: 048
     Dates: start: 20050520
  6. VANCOMYCIN [Concomitant]
     Dosage: 1 G, UNK
     Route: 042
     Dates: start: 20050525
  7. HEPARIN [Concomitant]
     Dosage: 24 CC / HR
     Route: 042
     Dates: start: 20050525
  8. METFORMIN [Concomitant]
     Indication: DIABETES MELLITUS
     Dosage: 500 MG, BID
     Route: 048
  9. TRIAMTERENE AND HYDROCHLOROTHIAZIDE [Concomitant]
     Dosage: 37.5 MG / 25MG
     Route: 048
  10. ASPIRIN [Concomitant]
     Dosage: 325 MG, QD
     Route: 048
     Dates: start: 20050520
  11. NITROGLYCERIN [Concomitant]
     Dosage: 5 MCG / MINUTE
     Route: 042
     Dates: start: 20050520
  12. FRESH FROZEN PLASMA [Concomitant]
     Dosage: UNK
     Route: 042
     Dates: start: 20050525
  13. CIPROFLOXACIN [Concomitant]
     Indication: PNEUMONIA
     Dosage: 1000 MG, UNK
     Route: 042
     Dates: start: 20050516
  14. ACCUPRIL [Concomitant]
     Dosage: 10 MG, QD
     Route: 048
     Dates: start: 20050520
  15. RED BLOOD CELLS [Concomitant]
     Dosage: 450 CC
     Route: 042
     Dates: start: 20050525
  16. PLATELETS [Concomitant]
     Dosage: 2 UNITS
     Route: 042
     Dates: start: 20050525
  17. TRASYLOL [Suspect]
     Indication: CORONARY ARTERY BYPASS
     Dosage: 400CC/HR
     Route: 042
     Dates: start: 20050525, end: 20050525
  18. TRASYLOL [Suspect]
     Dosage: 50 CC / HR
     Route: 042
     Dates: start: 20050525, end: 20050525
  19. PREDNISONE [Concomitant]
  20. EPINEPHRINE [Concomitant]
     Dosage: 20 MCG / MINUTE
     Route: 042
     Dates: start: 20050525

REACTIONS (6)
  - DEATH [None]
  - RENAL FAILURE [None]
  - INJURY [None]
  - PAIN [None]
  - UNEVALUABLE EVENT [None]
  - RENAL FAILURE ACUTE [None]
